FAERS Safety Report 23563776 (Version 1)
Quarter: 2024Q1

REPORT INFORMATION
  Report Type: Spontaneous
  Country: US (occurrence: US)
  Receive Date: 20240226
  Receipt Date: 20240226
  Transmission Date: 20240409
  Serious: No
  Sender: FDA-Public Use
  Company Number: US-PHOTOCURE ASA-PHCUS2024000001

PATIENT
  Age: 67 Year
  Sex: Male

DRUGS (4)
  1. CYSVIEW [Suspect]
     Active Substance: HEXAMINOLEVULINATE HYDROCHLORIDE
     Dosage: UNK
     Dates: start: 20240123, end: 20240123
  2. DEVICE [Suspect]
     Active Substance: DEVICE
  3. DEVICE [Suspect]
     Active Substance: DEVICE
  4. DEVICE [Suspect]
     Active Substance: DEVICE

REACTIONS (3)
  - Burning sensation [Unknown]
  - Chromaturia [Recovered/Resolved]
  - Medication error [Unknown]
